FAERS Safety Report 14149258 (Version 3)
Quarter: 2017Q4

REPORT INFORMATION
  Report Type: Spontaneous
  Country: US (occurrence: US)
  Receive Date: 20171101
  Receipt Date: 20171122
  Transmission Date: 20180321
  Serious: Yes (Hospitalization)
  Sender: FDA-Public Use
  Company Number: US-TRIS PHARMA, INC-2017TRISPO00423

PATIENT

DRUGS (2)
  1. DYANAVEL XR [Suspect]
     Active Substance: AMPHETAMINE
     Indication: ATTENTION DEFICIT/HYPERACTIVITY DISORDER
     Dosage: 0.5 ML, QD
     Route: 048
     Dates: start: 20171002, end: 20171009
  2. DYANAVEL XR [Suspect]
     Active Substance: AMPHETAMINE
     Indication: AUTISM SPECTRUM DISORDER
     Dosage: 1 ML, UNK
     Route: 048
     Dates: start: 20171009

REACTIONS (6)
  - Intentional overdose [Recovered/Resolved]
  - Vomiting [Unknown]
  - Tremor [Recovered/Resolved]
  - Agitation [Unknown]
  - Off label use [Unknown]
  - Insomnia [Recovered/Resolved]
